FAERS Safety Report 18669763 (Version 1)
Quarter: 2020Q4

REPORT INFORMATION
  Report Type: Spontaneous
  Country: AU (occurrence: AU)
  Receive Date: 20201228
  Receipt Date: 20201228
  Transmission Date: 20210114
  Serious: Yes (Other)
  Sender: FDA-Public Use
  Company Number: NVSC2020AU340451

PATIENT
  Sex: Male

DRUGS (1)
  1. COSENTYX [Suspect]
     Active Substance: SECUKINUMAB
     Indication: PSORIASIS
     Dosage: UNK
     Route: 065

REACTIONS (4)
  - Activated partial thromboplastin time prolonged [Unknown]
  - Antinuclear antibody positive [Unknown]
  - Systemic lupus erythematosus [Unknown]
  - Cardiolipin antibody positive [Unknown]

NARRATIVE: CASE EVENT DATE: 202012
